FAERS Safety Report 24242446 (Version 1)
Quarter: 2024Q3

REPORT INFORMATION
  Report Type: Other
  Country: CA (occurrence: CA)
  Receive Date: 20240823
  Receipt Date: 20240823
  Transmission Date: 20241017
  Serious: Yes (Hospitalization)
  Sender: ARGENX BVBA
  Company Number: CA-ARGENX-2024-ARGX-CA006864

PATIENT

DRUGS (1)
  1. VYVGART [Suspect]
     Active Substance: EFGARTIGIMOD ALFA-FCAB
     Indication: Product used for unknown indication
     Dosage: 10 MG/KG (SINGLE USE VIAL, SOLUTION INTRAVENOUS)
     Route: 042

REACTIONS (1)
  - Hospitalisation [Unknown]
